FAERS Safety Report 7730256-9 (Version None)
Quarter: 2011Q3

REPORT INFORMATION
  Report Type: 
  Country: None (occurrence: None)
  Receive Date: 20110906
  Receipt Date: 20110902
  Transmission Date: 20111222
  Serious: Yes (Death, Hospitalization)
  Sender: FDA-Public Use
  Company Number: PHHY2011CA75426

PATIENT
  Sex: Male

DRUGS (2)
  1. SANDOSTATIN LAR [Suspect]
     Indication: CARCINOID TUMOUR
     Dosage: 30 MG, EVERY 4 WEEKS
     Route: 030
     Dates: start: 20090414
  2. HYDROMORPHONE HCL [Concomitant]
     Dosage: 3 MG, UNK

REACTIONS (7)
  - CONCOMITANT DISEASE PROGRESSION [None]
  - DEHYDRATION [None]
  - RENAL FAILURE [None]
  - NASAL CONGESTION [None]
  - DIARRHOEA [None]
  - DISEASE PROGRESSION [None]
  - SWELLING FACE [None]
